FAERS Safety Report 5836246-5 (Version None)
Quarter: 2008Q3

REPORT INFORMATION
  Report Type: 
  Country: None (occurrence: None)
  Receive Date: 20080807
  Receipt Date: 20080729
  Transmission Date: 20090109
  Serious: Yes (Life-Threatening, Hospitalization, Other)
  Sender: FDA-Public Use
  Company Number: GB-RANBAXY-2008RR-16838

PATIENT

DRUGS (4)
  1. SIMVASTATIN 10MG TABLETS [Suspect]
     Dosage: 40 MG, UNK
     Route: 064
     Dates: end: 20080715
  2. CLOPIDOGREL HYDROGEN SULPHATE [Suspect]
     Dosage: 75 MG, UNK
     Dates: end: 20080715
  3. METFORMIN HCL [Concomitant]
     Dosage: 500 MG, BID
  4. PERINDOPRIL ERBUMINE [Concomitant]
     Dosage: 2 MG, QD

REACTIONS (7)
  - ANAEMIA [None]
  - CONVULSION [None]
  - GLASGOW COMA SCALE ABNORMAL [None]
  - LETHARGY [None]
  - MALAISE [None]
  - SYNCOPE [None]
  - THROMBOTIC THROMBOCYTOPENIC PURPURA [None]
